FAERS Safety Report 15389612 (Version 1)
Quarter: 2018Q3

REPORT INFORMATION
  Report Type: Report from Study
  Country: US (occurrence: US)
  Receive Date: 20180917
  Receipt Date: 20180917
  Transmission Date: 20181010
  Serious: No
  Sender: FDA-Public Use
  Company Number: PHHY2018US098795

PATIENT
  Age: 19 Year
  Sex: Male

DRUGS (1)
  1. ILARIS [Suspect]
     Active Substance: CANAKINUMAB
     Indication: CRYOPYRIN ASSOCIATED PERIODIC SYNDROME
     Dosage: 150 MG, (EVERY 6 WEEKS)
     Route: 058

REACTIONS (8)
  - Ill-defined disorder [Unknown]
  - Abdominal pain [Unknown]
  - Faeces discoloured [Unknown]
  - Fatigue [Unknown]
  - Insomnia [Unknown]
  - Vomiting [Unknown]
  - Nausea [Unknown]
  - Spinal pain [Unknown]

NARRATIVE: CASE EVENT DATE: 20180612
